FAERS Safety Report 7564471-4 (Version None)
Quarter: 2011Q2

REPORT INFORMATION
  Report Type: 
  Country: None (occurrence: None)
  Receive Date: 20110622
  Receipt Date: 20110615
  Transmission Date: 20111010
  Serious: Yes (Hospitalization)
  Sender: FDA-Public Use
  Company Number: PHHO2010CO06352

PATIENT
  Sex: Male
  Weight: 97.3 kg

DRUGS (9)
  1. NEORAL [Suspect]
     Indication: RENAL TRANSPLANT
     Dosage: 50 MG, BID
     Route: 048
     Dates: start: 20100206, end: 20110225
  2. MACRODANTIN [Concomitant]
  3. PREDNISONE [Concomitant]
     Indication: RENAL TRANSPLANT
     Dosage: 5 MG, QD
     Route: 048
     Dates: start: 20100206
  4. LASIX [Suspect]
  5. CERTICAN [Suspect]
     Indication: RENAL TRANSPLANT
     Dosage: 1.25 MG
     Route: 048
     Dates: start: 20100206
  6. COZAAR [Suspect]
  7. BACTRIM [Concomitant]
  8. NEORAL [Suspect]
     Dosage: 75 MG, QD
     Route: 048
  9. FUROSEMIDE [Suspect]

REACTIONS (9)
  - BLOOD CREATININE INCREASED [None]
  - HYPERCALCAEMIA [None]
  - RENAL DISORDER [None]
  - OEDEMA [None]
  - BLOOD PARATHYROID HORMONE INCREASED [None]
  - TUBULOINTERSTITIAL NEPHRITIS [None]
  - RENAL FAILURE ACUTE [None]
  - TRANSPLANT REJECTION [None]
  - BACK PAIN [None]
